FAERS Safety Report 5888473-9 (Version None)
Quarter: 2008Q3

REPORT INFORMATION
  Report Type: 
  Country: None (occurrence: None)
  Receive Date: 20080918
  Receipt Date: 20080905
  Transmission Date: 20090109
  Serious: Yes (Other)
  Sender: FDA-Public Use
  Company Number: IE-ELI_LILLY_AND_COMPANY-IE200809001828

PATIENT
  Sex: Female

DRUGS (1)
  1. CYMBALTA [Suspect]
     Indication: DEPRESSION
     Dosage: 30 MG, DAILY (1/D)
     Route: 048
     Dates: start: 20080701, end: 20080712

REACTIONS (5)
  - AKINESIA [None]
  - DYSTONIA [None]
  - INSOMNIA [None]
  - MUSCLE SPASMS [None]
  - RESTLESSNESS [None]
